FAERS Safety Report 7642570-6 (Version None)
Quarter: 2011Q3

REPORT INFORMATION
  Report Type: 
  Country: None (occurrence: None)
  Receive Date: 20110728
  Receipt Date: 20110721
  Transmission Date: 20111222
  Serious: Yes (Death)
  Sender: FDA-Public Use
  Company Number: US-JNJFOC-2007332153

PATIENT
  Age: 2 Month
  Sex: Female

DRUGS (4)
  1. PSEUDOEPHEDRINE HCL [Suspect]
     Route: 065
  2. PSEUDOEPHEDRINE HCL [Suspect]
     Indication: NASOPHARYNGITIS
     Dosage: DAILY DOSE TEXT: UNSPECIFIED
     Route: 065
  3. DEXTROMETHORPHAN HYDROBROMIDE [Suspect]
     Indication: PRODUCT USED FOR UNKNOWN INDICATION
     Dosage: DAILY DOSE TEXT: UNSPECIFIED
     Route: 065
  4. BROMPHENIRAMINE [Suspect]
     Indication: PRODUCT USED FOR UNKNOWN INDICATION
     Dosage: DAILY DOSE TEXT: UNSPECIFIED
     Route: 065

REACTIONS (3)
  - TOXICITY TO VARIOUS AGENTS [None]
  - COMA [None]
  - PULMONARY OEDEMA [None]
